FAERS Safety Report 6384059-0 (Version None)
Quarter: 2009Q3

REPORT INFORMATION
  Report Type: 
  Country: None (occurrence: None)
  Receive Date: 20090929
  Receipt Date: 20090915
  Transmission Date: 20100115
  Serious: Yes (Life-Threatening, Hospitalization)
  Sender: FDA-Public Use
  Company Number: 8049087

PATIENT
  Age: 52 Year
  Sex: Female
  Weight: 54 kg

DRUGS (9)
  1. CERTOLIZUMAB PEGOL [Suspect]
     Indication: RHEUMATOID ARTHRITIS
     Dosage: 200 MG 1/2W SC
     Route: 058
     Dates: start: 20060118, end: 20060706
  2. CERTOLIZUMAB PEGOL [Suspect]
     Indication: RHEUMATOID ARTHRITIS
     Dosage: 200 MG 1/2W SC
     Route: 058
     Dates: start: 20060706, end: 20090616
  3. METHOTREXATE [Concomitant]
  4. ENCORTON /00044702/ [Concomitant]
  5. ATENOLOL [Concomitant]
  6. AMLOZEK /00972401/ [Concomitant]
  7. TERTENSIF [Concomitant]
  8. FOLIC ACID [Concomitant]
  9. POLPRAZOL [Concomitant]

REACTIONS (17)
  - ADHESION [None]
  - ANAEMIA [None]
  - BLOOD ALBUMIN DECREASED [None]
  - DEHYDRATION [None]
  - DIAPHRAGMATIC DISORDER [None]
  - DISEASE PROGRESSION [None]
  - FIBRIN D DIMER INCREASED [None]
  - GASTROENTERITIS [None]
  - LABORATORY TEST ABNORMAL [None]
  - LUNG NEOPLASM [None]
  - LYMPHADENITIS [None]
  - OEDEMA PERIPHERAL [None]
  - PLEURAL FIBROSIS [None]
  - PNEUMOCOCCAL SEPSIS [None]
  - PNEUMONIA [None]
  - QRS AXIS ABNORMAL [None]
  - RENAL FUNCTION TEST ABNORMAL [None]
